FAERS Safety Report 6340269-X (Version None)
Quarter: 2009Q3

REPORT INFORMATION
  Report Type: 
  Country: None (occurrence: None)
  Receive Date: 20090902
  Receipt Date: 20090821
  Transmission Date: 20100115
  Serious: Yes (Hospitalization)
  Sender: FDA-Public Use
  Company Number: ADR17402009

PATIENT
  Age: 40 Year
  Sex: Male

DRUGS (1)
  1. CABERGOLINE [Suspect]
     Indication: PROLACTINOMA
     Dosage: 250 MG,
     Dates: end: 20081201

REACTIONS (1)
  - ECHOCARDIOGRAM ABNORMAL [None]
